FAERS Safety Report 23563988 (Version 2)
Quarter: 2024Q1

REPORT INFORMATION
  Report Type: Spontaneous
  Country: US (occurrence: US)
  Receive Date: 20240226
  Receipt Date: 20240327
  Transmission Date: 20240410
  Serious: Yes (Other)
  Sender: FDA-Public Use
  Company Number: US-ELI_LILLY_AND_COMPANY-US202402013730

PATIENT
  Age: 18 Year
  Sex: Male

DRUGS (1)
  1. TALTZ [Suspect]
     Active Substance: IXEKIZUMAB
     Indication: Psoriasis
     Dosage: 80 MG, OTHER (EVERY FOUR WEEKS)
     Route: 058

REACTIONS (5)
  - Acne [Unknown]
  - Skin burning sensation [Unknown]
  - Streptococcal infection [Recovered/Resolved]
  - Nasopharyngitis [Unknown]
  - Injection site inflammation [Unknown]
